FAERS Safety Report 5696267-2 (Version None)
Quarter: 2008Q2

REPORT INFORMATION
  Report Type: 
  Country: None (occurrence: None)
  Receive Date: 20080407
  Receipt Date: 20080326
  Transmission Date: 20081010
  Serious: Yes (Other)
  Sender: FDA-Public Use
  Company Number: GB-PFIZER INC-2008027492

PATIENT
  Age: 73 Year
  Sex: Female

DRUGS (2)
  1. LIPITOR [Suspect]
     Route: 048
  2. SIMVASTATIN [Suspect]

REACTIONS (3)
  - DIPLOPIA [None]
  - HYPOAESTHESIA [None]
  - VISION BLURRED [None]
